FAERS Safety Report 13529301 (Version 1)
Quarter: 2017Q2

REPORT INFORMATION
  Report Type: Spontaneous
  Country: US (occurrence: US)
  Receive Date: 20170509
  Receipt Date: 20170509
  Transmission Date: 20170830
  Serious: No
  Sender: FDA-Public Use
  Company Number: US-ROCHE-GNE298926

PATIENT
  Age: 58 Year
  Sex: Male
  Weight: 88.09 kg

DRUGS (4)
  1. ALUPENT [Concomitant]
     Active Substance: METAPROTERENOL SULFATE
     Indication: PRODUCT USED FOR UNKNOWN INDICATION
     Dosage: 2 PUFF, PRN, DOSE=2 PUFF
     Route: 065
  2. XOLAIR [Suspect]
     Active Substance: OMALIZUMAB
     Indication: ASTHMA
     Dosage: 300 MG, Q28D
     Route: 058
     Dates: start: 20080128, end: 20100102
  3. ADVAIR HFA [Concomitant]
     Active Substance: FLUTICASONE PROPIONATE\SALMETEROL XINAFOATE
     Indication: PRODUCT USED FOR UNKNOWN INDICATION
     Dosage: 1 UNIT, BID, DOSE=1 UNIT, DAILY DOSE=2 UNIT
     Route: 065
  4. SPIRIVA [Concomitant]
     Active Substance: TIOTROPIUM BROMIDE MONOHYDRATE
     Indication: PRODUCT USED FOR UNKNOWN INDICATION
     Dosage: UNK
     Route: 065

REACTIONS (5)
  - Amnesia [None]
  - Fatigue [None]
  - Asthma [None]
  - Depression [Recovered/Resolved]
  - Malaise [None]

NARRATIVE: CASE EVENT DATE: 20100102
